FAERS Safety Report 12061214 (Version 1)
Quarter: 2016Q1

REPORT INFORMATION
  Report Type: Spontaneous
  Country: US (occurrence: US)
  Receive Date: 20160210
  Receipt Date: 20160210
  Transmission Date: 20160526
  Serious: Yes (Other)
  Sender: FDA-Public Use
  Company Number: US-BAYER-2016-020800

PATIENT
  Sex: Female

DRUGS (1)
  1. RID SHAMPOO [Suspect]
     Active Substance: PIPERONYL BUTOXIDE\PYRETHRIN I

REACTIONS (3)
  - Scoliosis [Not Recovered/Not Resolved]
  - Foetal exposure timing unspecified [None]
  - Migraine [Not Recovered/Not Resolved]
